FAERS Safety Report 5774012-X (Version None)
Quarter: 2008Q2

REPORT INFORMATION
  Report Type: 
  Country: None (occurrence: None)
  Receive Date: 20080616
  Receipt Date: 20080611
  Transmission Date: 20081010
  Serious: Yes (Other)
  Sender: FDA-Public Use
  Company Number: DE-AVENTIS-200811045DE

PATIENT
  Age: 59 Year
  Sex: Female

DRUGS (1)
  1. ARAVA [Suspect]
     Indication: RHEUMATOID ARTHRITIS
     Route: 048
     Dates: start: 20080214

REACTIONS (3)
  - ALOPECIA [None]
  - MACULAR DEGENERATION [None]
  - RETINAL PIGMENT EPITHELIOPATHY [None]
